FAERS Safety Report 5704132-7 (Version None)
Quarter: 2008Q2

REPORT INFORMATION
  Report Type: 
  Country: None (occurrence: None)
  Receive Date: 20080414
  Receipt Date: 20080331
  Transmission Date: 20081010
  Serious: Yes (Hospitalization)
  Sender: FDA-Public Use
  Company Number: US-AMGEN-STX270749

PATIENT
  Sex: Male
  Weight: 130.8 kg

DRUGS (6)
  1. ENBREL [Suspect]
     Indication: PSORIATIC ARTHROPATHY
     Route: 058
     Dates: start: 20070524, end: 20071007
  2. ENBREL [Suspect]
     Indication: PSORIASIS
  3. ENBREL [Suspect]
     Indication: OSTEOARTHRITIS
  4. LIPITOR [Concomitant]
     Dates: start: 20010101
  5. ASPIRIN [Concomitant]
     Dates: start: 20010101
  6. ADVIL [Concomitant]
     Dates: start: 20010101

REACTIONS (2)
  - OSTEOARTHRITIS [None]
  - PSORIASIS [None]
